FAERS Safety Report 16599393 (Version 1)
Quarter: 2019Q3

REPORT INFORMATION
  Report Type: Spontaneous
  Country: US (occurrence: US)
  Receive Date: 20190719
  Receipt Date: 20190719
  Transmission Date: 20191004
  Serious: Yes (Other)
  Sender: FDA-Public Use
  Company Number: US-TEVA-2019-US-1079081

PATIENT

DRUGS (1)
  1. LETROZOLE. [Suspect]
     Active Substance: LETROZOLE
     Route: 048
     Dates: start: 20181004

REACTIONS (15)
  - Chest discomfort [Unknown]
  - Pruritus [Unknown]
  - Hypersensitivity [Unknown]
  - Depressed mood [Unknown]
  - Abdominal discomfort [Unknown]
  - Insomnia [Unknown]
  - Abdominal pain [Unknown]
  - Throat tightness [Unknown]
  - Abdominal pain upper [Unknown]
  - Diarrhoea [Unknown]
  - Pyrexia [Unknown]
  - Fatigue [Unknown]
  - Rash [Unknown]
  - Headache [Unknown]
  - Hot flush [Unknown]
